FAERS Safety Report 5057153-4 (Version None)
Quarter: 2006Q2

REPORT INFORMATION
  Report Type: 
  Country: None (occurrence: None)
  Receive Date: 20060622
  Receipt Date: 20060315
  Transmission Date: 20061013
  Serious: Yes (Hospitalization)
  Sender: FDA-Public Use
  Company Number: US-JNJFOC-20060304944

PATIENT
  Age: 55 Year
  Sex: Female
  Weight: 66.6788 kg

DRUGS (7)
  1. DURAGESIC-100 [Suspect]
     Indication: PAIN
     Dosage: SEE IMAGE
     Route: 062
     Dates: start: 20020101, end: 20050901
  2. DURAGESIC-100 [Suspect]
     Indication: PAIN
     Dosage: SEE IMAGE
     Route: 062
     Dates: start: 20050901
  3. ACCUPRIL [Concomitant]
  4. INDAPAMIDE (INDAPAMIDE) TABLET [Concomitant]
  5. NORTRIPTYLINE HCL [Concomitant]
  6. KLOR-CON/EF (POTASSIUM BICARBONATE) POWDER [Concomitant]
  7. XANAX XL (ALPRAZOLAM) TABLET [Concomitant]

REACTIONS (4)
  - FALL [None]
  - INTERVERTEBRAL DISC PROTRUSION [None]
  - NECK PAIN [None]
  - ROTATOR CUFF SYNDROME [None]
